FAERS Safety Report 4466700-2 (Version None)
Quarter: 2004Q4

REPORT INFORMATION
  Report Type: 
  Country: None (occurrence: None)
  Receive Date: 20041001
  Receipt Date: 20041001
  Transmission Date: 20050328
  Serious: Yes (Other)
  Sender: FDA-Public Use
  Company Number: None

PATIENT
  Age: 55 Year
  Sex: Female
  Weight: 58.9676 kg

DRUGS (4)
  1. LEVAQUIN [Suspect]
     Indication: CYSTITIS
     Dosage: ONE TABLET PER DAY ORAL
     Route: 048
     Dates: start: 20040905, end: 20040908
  2. NEURONTIN [Concomitant]
  3. TRIAMTERENE AND HYDROCHLOROTHIAZIDE [Concomitant]
  4. EFFEXOR [Concomitant]

REACTIONS (6)
  - ARTHRALGIA [None]
  - INSOMNIA [None]
  - LIGAMENT DISORDER [None]
  - MYALGIA [None]
  - PAIN [None]
  - TENDON DISORDER [None]
